FAERS Safety Report 7199093-0 (Version None)
Quarter: 2010Q4

REPORT INFORMATION
  Report Type: 
  Country: None (occurrence: None)
  Receive Date: 20101124
  Receipt Date: 20100921
  Transmission Date: 20110411
  Serious: Yes (Other)
  Sender: FDA-Public Use
  Company Number: 017277

PATIENT
  Sex: Female
  Weight: 72.6 kg

DRUGS (12)
  1. LACOSAMIDE [Suspect]
     Indication: GRAND MAL CONVULSION
     Dosage: (100 MG BID ORAL) ; (100 MG QD ORAL)
     Route: 048
     Dates: end: 20100802
  2. LACOSAMIDE [Suspect]
     Indication: GRAND MAL CONVULSION
     Dosage: (100 MG BID ORAL) ; (100 MG QD ORAL)
     Route: 048
     Dates: start: 20100802
  3. LACOSAMIDE [Suspect]
  4. ISOSORBIDE DINITRATE [Concomitant]
  5. TOPAMAX [Concomitant]
  6. LIPITOR [Concomitant]
  7. METOPROLOL [Concomitant]
  8. ATACAND [Concomitant]
  9. AVONEX /05983401/ [Concomitant]
  10. CALCIUM [Concomitant]
  11. ASPIRIN [Concomitant]
  12. .. [Concomitant]

REACTIONS (4)
  - DIPLOPIA [None]
  - HALLUCINATION [None]
  - HEADACHE [None]
  - SUICIDAL IDEATION [None]
